FAERS Safety Report 23300084 (Version 1)
Quarter: 2023Q4

REPORT INFORMATION
  Report Type: Spontaneous
  Country: US (occurrence: US)
  Receive Date: 20231215
  Receipt Date: 20231215
  Transmission Date: 20240109
  Serious: Yes (Other)
  Sender: FDA-Public Use
  Company Number: US-PROCTER+GAMBLE-PH23010999

PATIENT
  Age: 66 Year
  Sex: Female

DRUGS (2)
  1. VICKS NYQUIL SEVERE COLD AND FLU [Suspect]
     Active Substance: ACETAMINOPHEN\DEXTROMETHORPHAN HYDROBROMIDE\DOXYLAMINE SUCCINATE\PHENYLEPHRINE
     Indication: Nasopharyngitis
     Dosage: 7 DAYS WORTH OF NYQUIL ON AVERAGE, ONLY WHEN I HAD A COLD
     Route: 048
  2. FD+C RED NO. 40 [Suspect]
     Active Substance: FD+C RED NO. 40
     Dosage: UNK
     Route: 048

REACTIONS (7)
  - Anaphylactic shock [Unknown]
  - Eye swelling [Recovering/Resolving]
  - Lip swelling [Recovering/Resolving]
  - Throat irritation [Recovering/Resolving]
  - Eye irritation [Recovering/Resolving]
  - Cheilitis [Recovering/Resolving]
  - Reaction to colouring [Unknown]
